FAERS Safety Report 10896917 (Version 1)
Quarter: 2015Q1

REPORT INFORMATION
  Report Type: Spontaneous
  Country: US (occurrence: None)
  Receive Date: 20150302
  Receipt Date: 20150302
  Transmission Date: 20150721
  Serious: No
  Sender: FDA-Public Use
  Company Number: None

PATIENT
  Age: 34 Year
  Sex: Female

DRUGS (1)
  1. MIRVASO [Suspect]
     Active Substance: BRIMONIDINE TARTRATE
     Dosage: PEA  ONCE DAILY  APPLIED TO A SURFACE, USUALLY THE SKIN

REACTIONS (1)
  - Rosacea [None]

NARRATIVE: CASE EVENT DATE: 20150228
